FAERS Safety Report 21836386 (Version 1)
Quarter: 2023Q1

REPORT INFORMATION
  Report Type: Report from Study
  Country: CA (occurrence: None)
  Receive Date: 20230109
  Receipt Date: 20230109
  Transmission Date: 20230418
  Serious: Yes (Other)
  Sender: FDA-Public Use
  Company Number: CA-PFIZER INC-202300004584

PATIENT
  Age: 74 Year
  Sex: Female

DRUGS (14)
  1. METHOTREXATE [Suspect]
     Active Substance: METHOTREXATE
     Indication: Product used for unknown indication
     Route: 048
  2. METHOTREXATE [Suspect]
     Active Substance: METHOTREXATE
     Route: 030
  3. METHOTREXATE [Suspect]
     Active Substance: METHOTREXATE
     Route: 058
  4. CYCLOSPORINE [Suspect]
     Active Substance: CYCLOSPORINE
     Indication: Product used for unknown indication
     Route: 048
  5. LEFLUNOMIDE [Suspect]
     Active Substance: LEFLUNOMIDE
     Indication: Product used for unknown indication
     Route: 065
  6. AZATHIOPRINE [Concomitant]
     Active Substance: AZATHIOPRINE
     Route: 065
  7. CELEBREX [Concomitant]
     Active Substance: CELECOXIB
     Route: 048
  8. DESOXIMETASONE [Concomitant]
     Active Substance: DESOXIMETASONE
     Route: 030
  9. HUMIRA [Concomitant]
     Active Substance: ADALIMUMAB
     Route: 058
  10. HYDROXYCHLOROQUINE [Concomitant]
     Active Substance: HYDROXYCHLOROQUINE
     Route: 065
  11. NAPROXEN [Concomitant]
     Active Substance: NAPROXEN
     Route: 048
  12. PREDNISONE [Concomitant]
     Active Substance: PREDNISONE
     Route: 048
  13. SULFASALAZINE [Concomitant]
     Active Substance: SULFASALAZINE
     Route: 065
  14. XELJANZ [Concomitant]
     Active Substance: TOFACITINIB CITRATE
     Route: 048

REACTIONS (6)
  - Drug hypersensitivity [Unknown]
  - Erythema [Unknown]
  - Pain of skin [Unknown]
  - Pruritus [Unknown]
  - Psoriatic arthropathy [Unknown]
  - Self-consciousness [Unknown]
